FAERS Safety Report 7124090-0 (Version None)
Quarter: 2010Q4

REPORT INFORMATION
  Report Type: 
  Country: None (occurrence: None)
  Receive Date: 20101126
  Receipt Date: 20101112
  Transmission Date: 20110411
  Serious: Yes (Other)
  Sender: FDA-Public Use
  Company Number: PHHY2010BR77389

PATIENT
  Sex: Male
  Weight: 61 kg

DRUGS (2)
  1. EXFORGE [Suspect]
     Indication: HYPERTENSION
     Dosage: 160/ 5 MG,ONE TABLET
     Route: 048
  2. AMLODIPINE BESYLATE AND VALSARTAN [Suspect]
     Indication: HYPERTENSION
     Dosage: 160 / 5 MG

REACTIONS (5)
  - CATARACT OPERATION [None]
  - EYE OPERATION [None]
  - RENAL FAILURE [None]
  - RETINAL HAEMORRHAGE [None]
  - VISUAL IMPAIRMENT [None]
